FAERS Safety Report 6435066-0 (Version None)
Quarter: 2009Q4

REPORT INFORMATION
  Report Type: 
  Country: None (occurrence: None)
  Receive Date: 20091110
  Receipt Date: 20091027
  Transmission Date: 20100525
  Serious: Yes (Hospitalization, Other)
  Sender: FDA-Public Use
  Company Number: FR-PFIZER INC-2009294499

PATIENT
  Age: 29 Year
  Sex: Female
  Weight: 56 kg

DRUGS (6)
  1. HYDROXYZINE HCL [Suspect]
     Indication: PREMEDICATION
     Dosage: 100 MG, SINGLE
     Route: 048
  2. PROPOFOL [Suspect]
     Indication: GENERAL ANAESTHESIA
  3. MORPHINE SULFATE [Suspect]
     Indication: ANAESTHESIA
     Dosage: 400 UG, SINGLE
     Route: 008
  4. REMIFENTANIL [Suspect]
     Indication: GENERAL ANAESTHESIA
  5. SEVOFLURANE [Suspect]
     Indication: GENERAL ANAESTHESIA
  6. ATRACURIUM [Suspect]
     Indication: GENERAL ANAESTHESIA

REACTIONS (7)
  - MIGRAINE WITH AURA [None]
  - MONOPARESIS [None]
  - MUSCULAR WEAKNESS [None]
  - PARAESTHESIA [None]
  - PARAESTHESIA OF GENITAL FEMALE [None]
  - PARAPLEGIA [None]
  - URINARY RETENTION [None]
